FAERS Safety Report 4458212-7 (Version None)
Quarter: 2004Q3

REPORT INFORMATION
  Report Type: 
  Country: None (occurrence: None)
  Receive Date: 20040924
  Receipt Date: 20040820
  Transmission Date: 20050211
  Serious: Yes (Hospitalization)
  Sender: FDA-Public Use
  Company Number: US-ROCHE-378346

PATIENT
  Age: 24 Year
  Sex: Female
  Weight: 79.4 kg

DRUGS (2)
  1. ACCUTANE [Suspect]
     Indication: ACNE
     Route: 048
     Dates: start: 19990215, end: 19990815
  2. ORTHO TRI-CYCLEN [Concomitant]
     Route: 048

REACTIONS (10)
  - ARTHROPATHY [None]
  - ARTHROPOD BITE [None]
  - CALCULUS URETERIC [None]
  - CALCULUS URINARY [None]
  - CROHN'S DISEASE [None]
  - CULTURE STOOL POSITIVE [None]
  - CYSTITIS [None]
  - DEHYDRATION [None]
  - GASTROENTERITIS BACTERIAL [None]
  - YERSINIA INFECTION [None]
